FAERS Safety Report 4978556-X (Version None)
Quarter: 2006Q2

REPORT INFORMATION
  Report Type: 
  Country: None (occurrence: None)
  Receive Date: 20060414
  Receipt Date: 20060404
  Transmission Date: 20061013
  Serious: Yes (Other)
  Sender: FDA-Public Use
  Company Number: S06-USA-00979-01

PATIENT

DRUGS (1)
  1. COMBUNOX [Suspect]
     Indication: PAIN

REACTIONS (1)
  - POST PROCEDURAL HAEMORRHAGE [None]
